FAERS Safety Report 10393663 (Version 1)
Quarter: 2014Q3

REPORT INFORMATION
  Report Type: Spontaneous
  Country: JP (occurrence: None)
  Receive Date: 20140815
  Receipt Date: 20140815
  Transmission Date: 20150326
  Serious: Yes (Other)
  Sender: FDA-Public Use
  Company Number: JP-016755

PATIENT
  Age: 65 Year
  Sex: Male

DRUGS (6)
  1. PREDONINE [Concomitant]
     Active Substance: PREDNISOLONE\PREDNISOLONE ACETATE\PREDNISOLONE SODIUM SUCCINATE
  2. MAGMITT [Concomitant]
     Active Substance: MAGNESIUM OXIDE
  3. XTANDI [Suspect]
     Active Substance: ENZALUTAMIDE
     Indication: PROSTATE CANCER
     Route: 048
     Dates: start: 20140602, end: 20140723
  4. NORVASC [Concomitant]
     Active Substance: AMLODIPINE BESYLATE
  5. TAKEPRON [Concomitant]
     Active Substance: LANSOPRAZOLE
  6. GONAX [Suspect]
     Active Substance: DEGARELIX
     Indication: PROSTATE CANCER
     Dosage: 80 MG 1X/ MONTH SUBCUTANEOUS
     Route: 058

REACTIONS (4)
  - Intentional product misuse [None]
  - Decreased appetite [None]
  - Malaise [None]
  - Abdominal discomfort [None]

NARRATIVE: CASE EVENT DATE: 2014
